FAERS Safety Report 11774313 (Version 2)
Quarter: 2015Q4

REPORT INFORMATION
  Report Type: Spontaneous
  Country: CZ (occurrence: CZ)
  Receive Date: 20151124
  Receipt Date: 20151203
  Transmission Date: 20160304
  Serious: Yes (Death, Other)
  Sender: FDA-Public Use
  Company Number: CZ-ELI_LILLY_AND_COMPANY-CZ201511007046

PATIENT
  Age: 64 Year
  Sex: Female

DRUGS (2)
  1. ESOPREX                            /01479302/ [Concomitant]
     Indication: DEPRESSION
     Dosage: UNK, UNKNOWN
     Route: 065
  2. ZYPADHERA [Suspect]
     Active Substance: OLANZAPINE PAMOATE
     Indication: SCHIZOPHRENIA
     Dosage: 300 MG, 2/M
     Route: 030
     Dates: start: 20150828

REACTIONS (3)
  - Pulmonary embolism [Fatal]
  - General physical health deterioration [Unknown]
  - Syncope [Unknown]

NARRATIVE: CASE EVENT DATE: 20151111
